FAERS Safety Report 5146971-X (Version None)
Quarter: 2006Q4

REPORT INFORMATION
  Report Type: 
  Country: None (occurrence: None)
  Receive Date: 20061103
  Receipt Date: 20061024
  Transmission Date: 20070319
  Serious: Yes (Other)
  Sender: FDA-Public Use
  Company Number: 2006125561

PATIENT
  Age: 63 Year
  Sex: Female

DRUGS (6)
  1. AMLODIPINE [Suspect]
     Indication: HYPERTENSION
     Dosage: 10 MG (10 MG, ONCE DAILY), ORAL
     Route: 048
  2. OXAZEPAM [Concomitant]
  3. SALBUTAMOL [Concomitant]
  4. SIMVASTATIN [Concomitant]
  5. MEBEVIRINE [Concomitant]
  6. LISINOPRIL [Concomitant]

REACTIONS (6)
  - DYSPHAGIA [None]
  - NERVOUSNESS [None]
  - PHARMACEUTICAL PRODUCT COMPLAINT [None]
  - PHARYNGOLARYNGEAL PAIN [None]
  - THROAT IRRITATION [None]
  - ULCER [None]
